FAERS Safety Report 4889547-1 (Version None)
Quarter: 2006Q1

REPORT INFORMATION
  Report Type: 
  Country: None (occurrence: None)
  Receive Date: 20060120
  Receipt Date: 20060111
  Transmission Date: 20060701
  Serious: Yes (Other)
  Sender: FDA-Public Use
  Company Number: HQWYE307612JAN06

PATIENT
  Age: 73 Year
  Sex: Female

DRUGS (4)
  1. AMIODARONE HCL [Suspect]
     Indication: CARDIOVERSION
     Dosage: 300 MG 1X PER 1 DAY INTRAVENOUS
     Route: 042
     Dates: start: 20051208, end: 20051208
  2. AMIODARONE HCL [Suspect]
     Indication: VENTRICULAR ARRHYTHMIA
     Dosage: 300 MG 1X PER 1 DAY INTRAVENOUS
     Route: 042
     Dates: start: 20051208, end: 20051208
  3. MAGNESIUM SULFATE [Suspect]
     Indication: CARDIOVERSION
     Dosage: 3 G 1X PER 1 DAY INTRAVENOUS
     Route: 042
     Dates: start: 20051208, end: 20051208
  4. MAGNESIUM SULFATE [Suspect]
     Indication: VENTRICULAR ARRHYTHMIA
     Dosage: 3 G 1X PER 1 DAY INTRAVENOUS
     Route: 042
     Dates: start: 20051208, end: 20051208

REACTIONS (5)
  - BLOOD PRESSURE DECREASED [None]
  - CHILLS [None]
  - CYANOSIS [None]
  - HEART RATE INCREASED [None]
  - OXYGEN SATURATION DECREASED [None]
